FAERS Safety Report 5146044-6 (Version None)
Quarter: 2006Q4

REPORT INFORMATION
  Report Type: 
  Country: None (occurrence: None)
  Receive Date: 20061108
  Receipt Date: 20061107
  Transmission Date: 20070319
  Serious: Yes (Hospitalization)
  Sender: FDA-Public Use
  Company Number: AR-GLAXOSMITHKLINE-A0626458A

PATIENT
  Age: 75 Year
  Sex: Female

DRUGS (2)
  1. AROPAX [Suspect]
     Indication: DEPRESSION
     Dosage: 10MG PER DAY
     Route: 048
     Dates: start: 20060918, end: 20061018
  2. NO CONCURRENT MEDICATIONS [Concomitant]

REACTIONS (3)
  - ABDOMINAL OPERATION [None]
  - ADVERSE EVENT [None]
  - HYPONATRAEMIA [None]
